FAERS Safety Report 25552804 (Version 1)
Quarter: 2025Q3

REPORT INFORMATION
  Report Type: Spontaneous
  Country: US (occurrence: US)
  Receive Date: 20250715
  Receipt Date: 20250715
  Transmission Date: 20251020
  Serious: No
  Sender: BIONPHARMA INC.
  Company Number: US-Bion-015071

PATIENT
  Sex: Female

DRUGS (1)
  1. LOPERAMIDE HYDROCHLORIDE [Suspect]
     Active Substance: LOPERAMIDE HYDROCHLORIDE
     Indication: Product used for unknown indication
     Route: 048

REACTIONS (4)
  - Accidental exposure to product [Unknown]
  - Cough [Unknown]
  - Nasal discomfort [Unknown]
  - Oropharyngeal discomfort [Unknown]
